FAERS Safety Report 7368329-5 (Version None)
Quarter: 2011Q1

REPORT INFORMATION
  Report Type: 
  Country: None (occurrence: None)
  Receive Date: 20110311
  Receipt Date: 20110222
  Transmission Date: 20110831
  Serious: Yes (Other)
  Sender: FDA-Public Use
  Company Number: 2011P1004579

PATIENT
  Sex: Male

DRUGS (1)
  1. LAMOTRIGINE [Suspect]
     Dosage: 150 MG ;QD) PO
     Route: 048
     Dates: start: 20110101, end: 20110201

REACTIONS (2)
  - MALAISE [None]
  - CONVULSION [None]
